FAERS Safety Report 15610790 (Version 1)
Quarter: 2018Q4

REPORT INFORMATION
  Report Type: Spontaneous
  Country: US (occurrence: US)
  Receive Date: 20181113
  Receipt Date: 20181113
  Transmission Date: 20190205
  Serious: No
  Sender: FDA-Public Use
  Company Number: US-ROCHE-2112184

PATIENT
  Sex: Male

DRUGS (2)
  1. LUCENTIS [Suspect]
     Active Substance: RANIBIZUMAB
     Indication: MACULAR DEGENERATION
     Dosage: ONGOING: YES
     Route: 065
     Dates: start: 20180418
  2. AVASTIN [Suspect]
     Active Substance: BEVACIZUMAB
     Indication: PRODUCT USED FOR UNKNOWN INDICATION
     Dosage: ONGOING: NO
     Route: 065
     Dates: start: 2016

REACTIONS (4)
  - Disturbance in attention [Not Recovered/Not Resolved]
  - Body height decreased [Unknown]
  - Vitreous floaters [Not Recovered/Not Resolved]
  - Foreign body in eye [Unknown]

NARRATIVE: CASE EVENT DATE: 20180418
